FAERS Safety Report 14871989 (Version 2)
Quarter: 2018Q2

REPORT INFORMATION
  Report Type: Spontaneous
  Country: BG (occurrence: BG)
  Receive Date: 20180509
  Receipt Date: 20180611
  Transmission Date: 20180711
  Serious: Yes (Other)
  Sender: FDA-Public Use
  Company Number: BG-BAUSCH-BL-2018-012944

PATIENT
  Age: 16 Year
  Sex: Female

DRUGS (7)
  1. CARBAMAZEPINE. [Suspect]
     Active Substance: CARBAMAZEPINE
     Dosage: 900 MG, UNK
     Route: 065
  2. DIAZEPAM. [Suspect]
     Active Substance: DIAZEPAM
     Indication: EPILEPSY
     Route: 030
  3. PHENOBARBITAL. [Suspect]
     Active Substance: PHENOBARBITAL
     Indication: EPILEPSY
     Route: 030
  4. DEPAKINE [Suspect]
     Active Substance: VALPROATE SODIUM
     Route: 042
  5. DEPAKINE [Suspect]
     Active Substance: VALPROATE SODIUM
     Indication: EPILEPSY
     Route: 042
  6. CARBAMAZEPINE. [Suspect]
     Active Substance: CARBAMAZEPINE
     Indication: EPILEPSY
     Route: 065
  7. DIAZEPAM. [Suspect]
     Active Substance: DIAZEPAM
     Indication: EPILEPSY
     Route: 065

REACTIONS (7)
  - Hypotonia [Unknown]
  - Altered state of consciousness [Unknown]
  - Walking disability [Unknown]
  - Nystagmus [Unknown]
  - Somnolence [Recovering/Resolving]
  - Ataxia [Unknown]
  - Cerebellar syndrome [Recovering/Resolving]
